FAERS Safety Report 6053673-4 (Version None)
Quarter: 2009Q1

REPORT INFORMATION
  Report Type: 
  Country: None (occurrence: None)
  Receive Date: 20090127
  Receipt Date: 20080215
  Transmission Date: 20090719
  Serious: Yes (Other)
  Sender: FDA-Public Use
  Company Number: US-TEVA-167551USA

PATIENT
  Sex: Female

DRUGS (2)
  1. COPAXONE [Suspect]
     Indication: MULTIPLE SCLEROSIS
     Route: 058
     Dates: end: 20060101
  2. INTERFERON BETA [Concomitant]
     Dates: start: 20080101

REACTIONS (4)
  - ASTHENIA [None]
  - DIARRHOEA [None]
  - INTESTINAL FUNCTIONAL DISORDER [None]
  - MULTIPLE SCLEROSIS RELAPSE [None]
